FAERS Safety Report 12269001 (Version 1)
Quarter: 2016Q2

REPORT INFORMATION
  Report Type: Spontaneous
  Country: CN (occurrence: CN)
  Receive Date: 20160414
  Receipt Date: 20160414
  Transmission Date: 20160815
  Serious: Yes (Other)
  Sender: FDA-Public Use
  Company Number: CN-ROXANE LABORATORIES, INC.-2016-RO-00653RO

PATIENT
  Sex: Male

DRUGS (1)
  1. PROPRANOLOL HCL ORAL SOLUTION, 20MG/5ML [Suspect]
     Active Substance: PROPRANOLOL HYDROCHLORIDE
     Indication: INFANTILE HAEMANGIOMA
     Route: 048

REACTIONS (1)
  - Myocardial necrosis marker increased [Unknown]
